FAERS Safety Report 20385784 (Version 1)
Quarter: 2022Q1

REPORT INFORMATION
  Report Type: Spontaneous
  Country: US (occurrence: US)
  Receive Date: 20220127
  Receipt Date: 20220127
  Transmission Date: 20220423
  Serious: No
  Sender: FDA-Public Use
  Company Number: US-009507513-2201USA003993

PATIENT
  Age: 59 Year
  Sex: Female

DRUGS (2)
  1. NOXAFIL [Suspect]
     Active Substance: POSACONAZOLE
     Indication: Mucormycosis
     Dosage: 300 MILLIGRAM, QD
     Route: 048
     Dates: start: 202002
  2. NOXAFIL [Suspect]
     Active Substance: POSACONAZOLE
     Dosage: 100 MILLIGRAM, QD
     Route: 048
     Dates: start: 20220118

REACTIONS (2)
  - Alopecia [Not Recovered/Not Resolved]
  - Incorrect dose administered [Unknown]

NARRATIVE: CASE EVENT DATE: 20200501
